FAERS Safety Report 6303875-4 (Version None)
Quarter: 2009Q3

REPORT INFORMATION
  Report Type: 
  Country: None (occurrence: None)
  Receive Date: 20090807
  Receipt Date: 20090807
  Transmission Date: 20100115
  Serious: No
  Sender: FDA-Public Use
  Company Number: None

PATIENT
  Age: 59 Year
  Sex: Male
  Weight: 83.01 kg

DRUGS (1)
  1. VARDENAFIL [Suspect]
     Indication: ERECTILE DYSFUNCTION
     Dosage: 10 MG PRN PO
     Route: 048
     Dates: start: 20090512, end: 20090805

REACTIONS (3)
  - ABDOMINAL PAIN [None]
  - LACRIMATION INCREASED [None]
  - SINUS CONGESTION [None]
